FAERS Safety Report 5325151-9 (Version None)
Quarter: 2007Q2

REPORT INFORMATION
  Report Type: 
  Country: None (occurrence: None)
  Receive Date: 20070515
  Receipt Date: 20070507
  Transmission Date: 20071010
  Serious: Yes (Hospitalization)
  Sender: FDA-Public Use
  Company Number: ES-AVENTIS-200714060GDDC

PATIENT
  Age: 59 Year
  Sex: Male
  Weight: 75 kg

DRUGS (6)
  1. FLAGYL [Suspect]
     Indication: PROPHYLAXIS
     Route: 042
     Dates: start: 20070314, end: 20070314
  2. CLAFORAN [Suspect]
     Indication: PROPHYLAXIS
     Route: 042
     Dates: start: 20070314, end: 20070314
  3. CLEXANE [Concomitant]
     Indication: PROPHYLAXIS
     Route: 058
     Dates: start: 20070314, end: 20070317
  4. NOLOTIL                            /00473101/ [Concomitant]
     Indication: PROPHYLAXIS
     Route: 042
     Dates: start: 20070314, end: 20070314
  5. TRAMADOL NORMON [Concomitant]
     Indication: PROPHYLAXIS
     Route: 042
     Dates: start: 20070314, end: 20070314
  6. LOSEC                              /00661201/ [Concomitant]
     Indication: PROPHYLAXIS
     Route: 042
     Dates: start: 20070314, end: 20070317

REACTIONS (1)
  - ANAPHYLACTIC SHOCK [None]
